FAERS Safety Report 10559226 (Version 4)
Quarter: 2015Q3

REPORT INFORMATION
  Report Type: Spontaneous
  Country: US (occurrence: US)
  Receive Date: 20141103
  Receipt Date: 20150821
  Transmission Date: 20151125
  Serious: Yes (Death)
  Sender: FDA-Public Use
  Company Number: US-BIOGENIDEC-2014BI111411

PATIENT
  Age: 67 Year
  Sex: Female

DRUGS (1)
  1. AVONEX [Suspect]
     Active Substance: INTERFERON BETA-1A
     Indication: MULTIPLE SCLEROSIS
     Route: 030
     Dates: start: 20010918

REACTIONS (3)
  - Lung neoplasm malignant [Fatal]
  - Drug intolerance [Unknown]
  - Drug ineffective [Unknown]

NARRATIVE: CASE EVENT DATE: 2011
